FAERS Safety Report 4889994-8 (Version None)
Quarter: 2006Q1

REPORT INFORMATION
  Report Type: 
  Country: None (occurrence: None)
  Receive Date: 20060123
  Receipt Date: 20060110
  Transmission Date: 20060701
  Serious: Yes (Hospitalization)
  Sender: FDA-Public Use
  Company Number: 2006009337

PATIENT
  Age: 72 Year
  Sex: Female

DRUGS (9)
  1. SERTRALINE [Suspect]
     Indication: ILL-DEFINED DISORDER
     Dosage: 50 MG
  2. MEMANTINE HYDROCHLORIDE (MEMANTINE HYDROCHLORIDE) [Suspect]
     Indication: ILL-DEFINED DISORDER
     Dosage: 15 MG (2 IN 1 D)
     Dates: start: 20040101
  3. OLANZAPINE [Suspect]
     Indication: ILL-DEFINED DISORDER
     Dosage: 5 MG (1 IN 1 D)
  4. RIVASTIGMINE TARTRATE [Suspect]
     Indication: ILL-DEFINED DISORDER
     Dosage: 9 MG (2 IN 1 D)
  5. LATANOPROST [Concomitant]
  6. AMLODIPINE [Concomitant]
  7. VITAMIN B (VITAMIN B) [Concomitant]
  8. TAXOFIT (MINERALS NOS, VITAMINS NOS) [Concomitant]
  9. ASPIRIN [Concomitant]

REACTIONS (11)
  - CEREBRAL ATROPHY [None]
  - CEREBRAL ISCHAEMIA [None]
  - CONFUSIONAL STATE [None]
  - CREATININE RENAL CLEARANCE DECREASED [None]
  - FALL [None]
  - GRAND MAL CONVULSION [None]
  - HEADACHE [None]
  - LOSS OF CONSCIOUSNESS [None]
  - MUSCLE RIGIDITY [None]
  - POSTICTAL STATE [None]
  - SCREAMING [None]
